FAERS Safety Report 8551447 (Version 5)
Quarter: 2013Q3

REPORT INFORMATION
  Report Type: Report from Study
  Country: JP (occurrence: JP)
  Receive Date: 20120508
  Receipt Date: 20130923
  Transmission Date: 20140515
  Serious: Yes (Other)
  Sender: FDA-Public Use
  Company Number: JP-VERTEX PHARMACEUTICALS INC.-AE-2012-006306

PATIENT
  Age: 60 Year
  Sex: Male

DRUGS (22)
  1. VX-950 (TELAPREVIR) [Suspect]
     Indication: CHRONIC HEPATITIS C
     Dosage: 2250 MG, QD
     Route: 048
     Dates: start: 20120125, end: 20120417
  2. PEGINTRON [Suspect]
     Indication: CHRONIC HEPATITIS C
     Dosage: 1.5 ?G/KG, QW
     Route: 058
     Dates: start: 20120125, end: 20120125
  3. PEGINTRON [Suspect]
     Dosage: 1.2 ?G/KG, QW
     Route: 058
     Dates: start: 20120201, end: 20120208
  4. PEGINTRON [Suspect]
     Dosage: 1.5 ?G/KG, QW
     Route: 058
     Dates: start: 20120215, end: 20120215
  5. PEGINTRON [Suspect]
     Dosage: 1.2 ?G/KG, QW
     Route: 058
     Dates: start: 20120222, end: 20120222
  6. PEGINTRON [Suspect]
     Dosage: 1 ?G/KG, QW
     Route: 058
     Dates: start: 20120229, end: 20120314
  7. PEGINTRON [Suspect]
     Dosage: 1.2 ?G/KG, QW
     Route: 058
     Dates: start: 20120321, end: 20120509
  8. PEGINTRON [Suspect]
     Dosage: 0.8 ?G/KG, QW
     Route: 058
     Dates: start: 20120516, end: 20120516
  9. PEGINTRON [Suspect]
     Dosage: 1.2 ?G/KG, QW
     Route: 058
     Dates: start: 20120523
  10. RIBAVIRIN [Suspect]
     Indication: CHRONIC HEPATITIS C
     Dosage: 1000 MG, QD
     Route: 048
     Dates: start: 20120125, end: 20120129
  11. RIBAVIRIN [Suspect]
     Dosage: 800 MG, QD
     Route: 048
     Dates: start: 20120130, end: 20120205
  12. RIBAVIRIN [Suspect]
     Dosage: 400 MG, QD
     Route: 048
     Dates: start: 20120206, end: 20120214
  13. RIBAVIRIN [Suspect]
     Dosage: 600 MG, QD
     Route: 048
     Dates: start: 20120215, end: 20120306
  14. RIBAVIRIN [Suspect]
     Dosage: 800 MG, QD
     Route: 048
     Dates: start: 20120307, end: 20120313
  15. RIBAVIRIN [Suspect]
     Dosage: 600 MG, QD
     Route: 048
     Dates: start: 20120314, end: 20120403
  16. RIBAVIRIN [Suspect]
     Dosage: 800 MG, QD
     Route: 048
     Dates: start: 20120404
  17. METGLUCO [Concomitant]
     Dosage: 500 MG, QD
     Route: 048
  18. AMARYL [Concomitant]
     Dosage: 1 MG, QD
     Route: 048
  19. JANUVIA [Concomitant]
     Dosage: 50 MG, QD
     Route: 048
  20. ZYLORIC [Concomitant]
     Dosage: 100 MG, QD
     Route: 048
  21. OMEPRAL [Concomitant]
     Dosage: 20 MG, QD
     Route: 048
     Dates: start: 20120125
  22. GASMOTIN [Concomitant]
     Dosage: 10 MG, QD
     Route: 048

REACTIONS (1)
  - Neutrophil count decreased [Recovered/Resolved]
